FAERS Safety Report 7727634-0 (Version None)
Quarter: 2011Q3

REPORT INFORMATION
  Report Type: 
  Country: None (occurrence: None)
  Receive Date: 20110902
  Receipt Date: 20110830
  Transmission Date: 20111222
  Serious: Yes (Hospitalization, Other)
  Sender: FDA-Public Use
  Company Number: CHPA2011US11730

PATIENT
  Age: 88 Year
  Sex: Female

DRUGS (3)
  1. BUCKLEY'S CHEST CONGESTION [Suspect]
     Dosage: 1 TSP, ONCE/SINGLE
     Route: 048
     Dates: start: 20110829, end: 20110829
  2. BUCKLEY'S CHEST CONGESTION [Suspect]
     Indication: INCREASED UPPER AIRWAY SECRETION
     Dosage: UNK DF, PRN
     Route: 048
     Dates: start: 20010101, end: 20110828
  3. BUCKLEY'S CHEST CONGESTION [Suspect]
     Dosage: 2 TSP, ONCE/SINGLE
     Route: 048
     Dates: start: 20110830, end: 20110830

REACTIONS (6)
  - ASTHMA [None]
  - BRONCHITIS [None]
  - PULMONARY CONGESTION [None]
  - PYREXIA [None]
  - HYPERTENSION [None]
  - FEELING HOT [None]
